FAERS Safety Report 21146670 (Version 1)
Quarter: 2022Q3

REPORT INFORMATION
  Report Type: Spontaneous
  Country: IT (occurrence: None)
  Receive Date: 20220729
  Receipt Date: 20220729
  Transmission Date: 20221027
  Serious: Yes (Other)
  Sender: FDA-Public Use
  Company Number: IT-ROCHE-3150049

PATIENT
  Age: 30 Year
  Sex: Female

DRUGS (7)
  1. RIVOTRIL [Suspect]
     Active Substance: CLONAZEPAM
     Indication: Major depression
     Route: 048
  2. FLUOXETINE HYDROCHLORIDE [Suspect]
     Active Substance: FLUOXETINE HYDROCHLORIDE
     Indication: Major depression
     Route: 048
     Dates: start: 20220214, end: 20220308
  3. LYRICA [Suspect]
     Active Substance: PREGABALIN
     Indication: Major depression
     Route: 048
  4. REBOXETINE [Suspect]
     Active Substance: REBOXETINE
     Indication: Major depression
     Route: 048
  5. SERTRALINE [Suspect]
     Active Substance: SERTRALINE HYDROCHLORIDE
     Indication: Major depression
     Route: 048
  6. TRAZODONE HYDROCHLORIDE [Suspect]
     Active Substance: TRAZODONE HYDROCHLORIDE
     Indication: Major depression
     Route: 048
  7. TIZANIDINE [Concomitant]
     Active Substance: TIZANIDINE

REACTIONS (4)
  - Asthenia [Recovering/Resolving]
  - Presyncope [Recovering/Resolving]
  - Drug interaction [Unknown]
  - Off label use [Unknown]

NARRATIVE: CASE EVENT DATE: 20220301
